FAERS Safety Report 10986007 (Version 1)
Quarter: 2015Q2

REPORT INFORMATION
  Report Type: Spontaneous
  Country: US (occurrence: US)
  Receive Date: 20150404
  Receipt Date: 20150404
  Transmission Date: 20150821
  Serious: No
  Sender: FDA-Public Use
  Company Number: US-ENDO PHARMACEUTICALS INC.-FURO20140013

PATIENT
  Age: 86 Year
  Sex: Female

DRUGS (1)
  1. FUROSEMIDE TABLETS 20MG [Suspect]
     Active Substance: FUROSEMIDE
     Indication: PRODUCT USED FOR UNKNOWN INDICATION
     Route: 048

REACTIONS (1)
  - Dry eye [Unknown]
